FAERS Safety Report 22538063 (Version 1)
Quarter: 2023Q2

REPORT INFORMATION
  Report Type: Report from Study
  Country: US (occurrence: US)
  Receive Date: 20230608
  Receipt Date: 20230608
  Transmission Date: 20230722
  Serious: Yes (Hospitalization, Other)
  Sender: FDA-Public Use
  Company Number: US-ABBVIE-5280543

PATIENT
  Sex: Female

DRUGS (1)
  1. HUMIRA [Suspect]
     Active Substance: ADALIMUMAB
     Indication: Crohn^s disease
     Dosage: FORM STRENGTH-40 MG
     Route: 058
     Dates: start: 20221109

REACTIONS (3)
  - Intestinal obstruction [Recovered/Resolved]
  - Drug level increased [Recovered/Resolved]
  - Intestinal stenosis [Recovered/Resolved]
